FAERS Safety Report 9852051 (Version 4)
Quarter: 2014Q2

REPORT INFORMATION
  Report Type: Spontaneous
  Country: US (occurrence: US)
  Receive Date: 20140129
  Receipt Date: 20140409
  Transmission Date: 20141212
  Serious: Yes (Other)
  Sender: FDA-Public Use
  Company Number: US-PFIZER INC-2014021604

PATIENT
  Age: 65 Year
  Sex: Female

DRUGS (1)
  1. PREMARIN [Suspect]
     Indication: HORMONE REPLACEMENT THERAPY
     Dosage: 0.625 MG, DAILY
     Route: 048
     Dates: start: 1984, end: 201005

REACTIONS (10)
  - Ovarian cancer metastatic [Not Recovered/Not Resolved]
  - Rectal haemorrhage [Unknown]
  - Large intestinal haemorrhage [Unknown]
  - Intestinal obstruction [Unknown]
  - Colostomy infection [Unknown]
  - Skin disorder [Unknown]
  - Malaise [Unknown]
  - Flatulence [Unknown]
  - Dyspepsia [Unknown]
  - Daydreaming [Unknown]
